FAERS Safety Report 4525863-0 (Version None)
Quarter: 2004Q4

REPORT INFORMATION
  Report Type: 
  Country: None (occurrence: None)
  Receive Date: 20041124
  Receipt Date: 20040210
  Transmission Date: 20050328
  Serious: Yes (Hospitalization, Other)
  Sender: FDA-Public Use
  Company Number: 2003127143

PATIENT
  Age: 63 Year
  Sex: Male
  Weight: 131.5431 kg

DRUGS (16)
  1. TIKOSYN [Suspect]
     Indication: ATRIAL FIBRILLATION
     Dosage: 1000 MCG (BID), ORAL
     Route: 048
     Dates: start: 20031101
  2. METOPROLOL TARTRATE [Concomitant]
  3. WARFARIN SODIUM [Concomitant]
  4. VALSARTAN (VALSARTAN) [Concomitant]
  5. DILTIAZEM HYDROCHLORIDE [Concomitant]
  6. METFORMIN HCL [Concomitant]
  7. PIOGLITAZONE HCL [Concomitant]
  8. EZETIMIBE (EZETIMIBE) [Concomitant]
  9. TAMSULOSIN (TAMSULOSIN) [Concomitant]
  10. CELECOXIB (CELECOXIB) [Concomitant]
  11. TRAMADOL HCL [Concomitant]
  12. ESCITALOPRAM (ESCITALOPRAM) [Concomitant]
  13. CLONAZEPAM [Concomitant]
  14. MECLOZINE (MECLOZINE) [Concomitant]
  15. PRAVASTATIN SODIUM [Concomitant]
  16. SOTALOL HCL [Concomitant]

REACTIONS (4)
  - ATRIAL FIBRILLATION [None]
  - BLOOD CREATININE INCREASED [None]
  - MENTAL IMPAIRMENT [None]
  - MYOCARDIAL INFARCTION [None]
